FAERS Safety Report 4642403-6 (Version None)
Quarter: 2005Q2

REPORT INFORMATION
  Report Type: 
  Country: None (occurrence: None)
  Receive Date: 20050422
  Receipt Date: 20050411
  Transmission Date: 20051028
  Serious: Yes (Hospitalization)
  Sender: FDA-Public Use
  Company Number: FR-BRISTOL-MYERS SQUIBB COMPANY-12929899

PATIENT
  Age: 52 Year
  Sex: Male

DRUGS (6)
  1. AMIKLIN INJ 1 G [Suspect]
     Indication: PROPHYLAXIS
     Route: 042
     Dates: start: 20041216, end: 20050103
  2. AXEPIM INJ 2 GM [Suspect]
     Indication: PROPHYLAXIS
     Route: 042
     Dates: start: 20041216, end: 20050108
  3. ARACYTINE [Suspect]
     Route: 042
     Dates: start: 20041217, end: 20041220
  4. DANATROL [Suspect]
     Dates: start: 20041007, end: 20041206
  5. CANCIDAS [Suspect]
     Route: 042
     Dates: start: 20050110, end: 20050121
  6. ZAVEDOS [Suspect]
     Dates: start: 20041216, end: 20041218

REACTIONS (4)
  - ALANINE AMINOTRANSFERASE INCREASED [None]
  - ASPARTATE AMINOTRANSFERASE INCREASED [None]
  - GAMMA-GLUTAMYLTRANSFERASE INCREASED [None]
  - HYPERBILIRUBINAEMIA [None]
